FAERS Safety Report 17906893 (Version 5)
Quarter: 2020Q4

REPORT INFORMATION
  Report Type: Spontaneous
  Country: US (occurrence: US)
  Receive Date: 20200617
  Receipt Date: 20201012
  Transmission Date: 20210113
  Serious: Yes (Other)
  Sender: FDA-Public Use
  Company Number: US-PFIZER INC-2020234826

PATIENT
  Age: 66 Year
  Sex: Female

DRUGS (1)
  1. XELJANZ XR [Suspect]
     Active Substance: TOFACITINIB CITRATE
     Indication: RHEUMATOID ARTHRITIS
     Dosage: 11 MG, DAILY
     Route: 048
     Dates: start: 2018

REACTIONS (12)
  - Knee deformity [Unknown]
  - Abdominal pain upper [Unknown]
  - Bronchitis [Recovered/Resolved]
  - Hand deformity [Unknown]
  - Aphonia [Unknown]
  - Back pain [Unknown]
  - Cough [Unknown]
  - Oropharyngeal pain [Unknown]
  - Liver function test abnormal [Unknown]
  - Product dose omission issue [Unknown]
  - Musculoskeletal chest pain [Unknown]
  - Nausea [Unknown]

NARRATIVE: CASE EVENT DATE: 2020
